FAERS Safety Report 10226763 (Version 1)
Quarter: 2014Q2

REPORT INFORMATION
  Report Type: Spontaneous
  Country: US (occurrence: US)
  Receive Date: 20140610
  Receipt Date: 20140610
  Transmission Date: 20141212
  Serious: Yes (Other)
  Sender: FDA-Public Use
  Company Number: US-JNJCP-30000222197

PATIENT
  Sex: Male

DRUGS (2)
  1. NEUTROGENA ULTRA SHEER SUNBLOCK SPF100 [Suspect]
     Indication: PROPHYLAXIS
     Route: 061
  2. NEUTROGENA ULTRA SHEER SUNBLOCK SPF100 [Suspect]
     Indication: PROPHYLAXIS
     Route: 061

REACTIONS (3)
  - Skin cancer [Unknown]
  - Product physical issue [Unknown]
  - Drug ineffective [Unknown]
